FAERS Safety Report 18792803 (Version 1)
Quarter: 2021Q1

REPORT INFORMATION
  Report Type: Spontaneous
  Country: DE (occurrence: DE)
  Receive Date: 20210127
  Receipt Date: 20210127
  Transmission Date: 20210419
  Serious: Yes (Life-Threatening, Hospitalization, Disabling, Other)
  Sender: FDA-Public Use
  Company Number: DE-ALKEM LABORATORIES LIMITED-DE-ALKEM-2021-00122

PATIENT
  Age: 30 Year
  Sex: Female
  Weight: 68 kg

DRUGS (14)
  1. CLOBEGALEN [Concomitant]
     Indication: PRODUCT USED FOR UNKNOWN INDICATION
     Dosage: 1 UNK, BID
     Route: 050
  2. PANTOPRAZOL HEXAL [Concomitant]
     Active Substance: PANTOPRAZOLE
     Indication: PROPHYLAXIS
     Dosage: 40 MILLIGRAM
     Route: 050
     Dates: start: 20170324
  3. UREA, EUCERIN [Concomitant]
     Indication: PRODUCT USED FOR UNKNOWN INDICATION
     Dosage: 5 % (W/W), QD
     Route: 050
  4. CORTISONE [Suspect]
     Active Substance: CORTISONE
     Dosage: 2 GRAM, QD
     Route: 042
     Dates: start: 20170324, end: 20170329
  5. CORTISONE [Suspect]
     Active Substance: CORTISONE
     Indication: DRUG REACTION WITH EOSINOPHILIA AND SYSTEMIC SYMPTOMS
     Dosage: UNK
     Route: 065
  6. DEKRISTOL [Concomitant]
     Active Substance: CHOLECALCIFEROL
     Indication: VITAMIN D DEFICIENCY
     Dosage: 20000 INTERNATIONAL UNIT, ONCE WEEKLY
     Route: 050
  7. MIRTAZAPINE. [Concomitant]
     Active Substance: MIRTAZAPINE
     Indication: ADJUSTMENT DISORDER WITH DEPRESSED MOOD
     Dosage: 15 MILLIGRAM
     Route: 050
     Dates: start: 20170320
  8. PANTOPRAZOL HEXAL [Concomitant]
     Active Substance: PANTOPRAZOLE
     Dosage: 40 MILLIGRAM, QD
  9. PIPERACILLINE, TAZOBACTAM [Suspect]
     Active Substance: PIPERACILLIN SODIUM\TAZOBACTAM SODIUM
     Indication: ENCEPHALITIS AUTOIMMUNE
     Dosage: UNK
     Route: 065
     Dates: start: 20170406, end: 20170408
  10. ZINBRYTA [Suspect]
     Active Substance: DACLIZUMAB
     Indication: RELAPSING-REMITTING MULTIPLE SCLEROSIS
     Dosage: 150 MILLIGRAM (EVERY 1 MONTH)
     Route: 050
     Dates: start: 20161015, end: 20170112
  11. CEFUROXIME AXETIL. [Suspect]
     Active Substance: CEFUROXIME AXETIL
     Indication: ENCEPHALITIS AUTOIMMUNE
     Dosage: UNK
     Route: 042
     Dates: start: 20170322, end: 20170322
  12. VIGANTOLETTEN [Concomitant]
     Active Substance: CHOLECALCIFEROL
     Indication: PRODUCT USED FOR UNKNOWN INDICATION
     Dosage: 1000 INTERNATIONAL UNIT, QD
     Route: 050
  13. CORTISONE [Suspect]
     Active Substance: CORTISONE
     Dosage: 80 MILLIGRAM
     Route: 065
     Dates: start: 20170407, end: 20170407
  14. CALCIVIT D [Concomitant]
     Indication: PRODUCT USED FOR UNKNOWN INDICATION
     Dosage: 1 UNK, QD
     Route: 050

REACTIONS (9)
  - Encephalitis autoimmune [Not Recovered/Not Resolved]
  - Oral candidiasis [Unknown]
  - Drug reaction with eosinophilia and systemic symptoms [Recovered/Resolved with Sequelae]
  - Aspartate aminotransferase increased [Recovered/Resolved]
  - Natural killer cell count decreased [Recovered/Resolved]
  - Demyelination [Not Recovered/Not Resolved]
  - B-lymphocyte count increased [Recovered/Resolved]
  - Blood lactate dehydrogenase increased [Unknown]
  - Alanine aminotransferase increased [Recovered/Resolved]

NARRATIVE: CASE EVENT DATE: 20170125
